FAERS Safety Report 5026388-9 (Version None)
Quarter: 2006Q2

REPORT INFORMATION
  Report Type: 
  Country: None (occurrence: None)
  Receive Date: 20060426
  Receipt Date: 20060103
  Transmission Date: 20061013
  Serious: Yes (Other)
  Sender: FDA-Public Use
  Company Number: 2006002805

PATIENT
  Age: 38 Year
  Sex: Male

DRUGS (4)
  1. LYRICA [Suspect]
     Indication: ILL-DEFINED DISORDER
     Dosage: 100 MG (50 MG, 2 IN 1 D)
  2. TRAZODONE HCL [Concomitant]
  3. DIAZEPAM [Concomitant]
  4. PERCOCET [Concomitant]

REACTIONS (3)
  - FALL [None]
  - OPEN WOUND [None]
  - SWELLING FACE [None]
